FAERS Safety Report 4436585-9 (Version None)
Quarter: 2004Q3

REPORT INFORMATION
  Report Type: 
  Country: None (occurrence: None)
  Receive Date: 20040830
  Receipt Date: 20040708
  Transmission Date: 20050211
  Serious: No
  Sender: FDA-Public Use
  Company Number: US-BRISTOL-MYERS SQUIBB COMPANY-12636247

PATIENT
  Sex: Male

DRUGS (5)
  1. ABILIFY [Suspect]
  2. GEODON [Concomitant]
  3. DEPAKOTE [Concomitant]
  4. KLONOPIN [Concomitant]
  5. ZYPREXA [Concomitant]

REACTIONS (2)
  - HYPOMANIA [None]
  - PARAPHILIA [None]
